FAERS Safety Report 4507497-7 (Version None)
Quarter: 2004Q4

REPORT INFORMATION
  Report Type: 
  Country: None (occurrence: None)
  Receive Date: 20041123
  Receipt Date: 20041112
  Transmission Date: 20050328
  Serious: Yes (Hospitalization, Other)
  Sender: FDA-Public Use
  Company Number: US-JNJFOC-20041103499

PATIENT
  Sex: Female
  Weight: 77.11 kg

DRUGS (24)
  1. REMICADE [Suspect]
     Route: 042
  2. REMICADE [Suspect]
     Indication: RHEUMATOID ARTHRITIS
     Route: 042
  3. PREDNISONE [Concomitant]
  4. AMITRIPTYLINE HCL [Concomitant]
  5. AMBIEN [Concomitant]
  6. LIPITOR [Concomitant]
  7. CELEXA [Concomitant]
  8. POTASSIUM [Concomitant]
  9. HUMALOG [Concomitant]
  10. LANTUS [Concomitant]
  11. DN 100 [Concomitant]
  12. DN 100 [Concomitant]
  13. DIOVAN [Concomitant]
  14. LIMBITROL [Concomitant]
  15. LIMBITROL [Concomitant]
  16. LOPRESSOR [Concomitant]
  17. BENTYL [Concomitant]
  18. PREMARIN [Concomitant]
  19. AVADAMET [Concomitant]
  20. METHIMAZOLE [Concomitant]
  21. NORVASC [Concomitant]
  22. RIFAMATE [Concomitant]
  23. RIFAMATE [Concomitant]
  24. PYRIZOXIDE [Concomitant]

REACTIONS (3)
  - CARDIAC FAILURE CONGESTIVE [None]
  - LYMPH NODE TUBERCULOSIS [None]
  - PNEUMONIA [None]
